FAERS Safety Report 16891096 (Version 1)
Quarter: 2019Q4

REPORT INFORMATION
  Report Type: Spontaneous
  Country: IT (occurrence: IT)
  Receive Date: 20191007
  Receipt Date: 20191007
  Transmission Date: 20200122
  Serious: Yes (Hospitalization)
  Sender: FDA-Public Use
  Company Number: IT-PFIZER INC-2019426867

PATIENT
  Age: 70 Year
  Sex: Female

DRUGS (3)
  1. LORAZEPAM. [Suspect]
     Active Substance: LORAZEPAM
     Dosage: 50 MG, TOTAL - OVERDOSE
     Route: 048
  2. PAROXETINE. [Suspect]
     Active Substance: PAROXETINE
     Dosage: 700 MG, TOTAL - OVERDOSE
     Route: 048
  3. OLANZAPINE. [Suspect]
     Active Substance: OLANZAPINE
     Dosage: 490 MG, TOTAL - OVERDOSE
     Route: 048

REACTIONS (3)
  - Sopor [Unknown]
  - Coma scale abnormal [Unknown]
  - Overdose [Unknown]

NARRATIVE: CASE EVENT DATE: 20190403
